FAERS Safety Report 18548848 (Version 1)
Quarter: 2020Q4

REPORT INFORMATION
  Report Type: Report from Study
  Country: None (occurrence: NL)
  Receive Date: 20201125
  Receipt Date: 20201125
  Transmission Date: 20210114
  Serious: Yes (Other)
  Sender: FDA-Public Use
  Company Number: NL-ABBVIE-20K-114-3659676-00

PATIENT
  Sex: Female

DRUGS (3)
  1. SYMMETREL [Concomitant]
     Active Substance: AMANTADINE HYDROCHLORIDE
     Indication: PRODUCT USED FOR UNKNOWN INDICATION
  2. DUODOPA [Suspect]
     Active Substance: CARBIDOPA\LEVODOPA
     Indication: PARKINSON^S DISEASE
     Dosage: MD 2.0 ML, CD 1.7 ML/H, ED 1.6 ML
     Route: 050
     Dates: start: 20190301
  3. DUODOPA [Suspect]
     Active Substance: CARBIDOPA\LEVODOPA
     Dosage: MD 2.1 ML, CD 1.9 ML/H, ED 1.6 ML
     Route: 050

REACTIONS (9)
  - Hallucination [Recovering/Resolving]
  - Psychomotor skills impaired [Not Recovered/Not Resolved]
  - Loss of consciousness [Recovered/Resolved]
  - Concussion [Not Recovered/Not Resolved]
  - Urinary tract infection [Unknown]
  - Fall [Recovered/Resolved]
  - Cystitis [Not Recovered/Not Resolved]
  - Delirium [Not Recovered/Not Resolved]
  - Confusional state [Not Recovered/Not Resolved]

NARRATIVE: CASE EVENT DATE: 2020
